FAERS Safety Report 6376767-2 (Version None)
Quarter: 2009Q3

REPORT INFORMATION
  Report Type: 
  Country: None (occurrence: None)
  Receive Date: 20090924
  Receipt Date: 20090924
  Transmission Date: 20100115
  Serious: No
  Sender: FDA-Public Use
  Company Number: None

PATIENT
  Sex: Female

DRUGS (1)
  1. ACTONEL [Suspect]
     Indication: HIP FRACTURE
     Dosage: 35MG 1 PER WEEK ORAL
     Route: 048
     Dates: start: 20090301

REACTIONS (3)
  - FURUNCLE [None]
  - RECURRING SKIN BOILS [None]
  - SCAR [None]
